FAERS Safety Report 21306796 (Version 1)
Quarter: 2022Q3

REPORT INFORMATION
  Report Type: Spontaneous
  Country: CN (occurrence: CN)
  Receive Date: 20220908
  Receipt Date: 20220908
  Transmission Date: 20221027
  Serious: Yes (Hospitalization, Other)
  Sender: FDA-Public Use
  Company Number: None

PATIENT
  Age: 50 Year
  Sex: Female
  Weight: 56.5 kg

DRUGS (8)
  1. CYCLOPHOSPHAMIDE [Suspect]
     Active Substance: CYCLOPHOSPHAMIDE
     Indication: Breast cancer female
     Dosage: 0.76G, QD, (DILUTED WITH 0.9% SODIUM CHLORIDE INJECTION )
     Route: 040
     Dates: start: 20220824, end: 20220824
  2. SODIUM CHLORIDE [Suspect]
     Active Substance: SODIUM CHLORIDE
     Indication: Medication dilution
     Dosage: 80ML, QD, (DILUTED WITH CYCLOPHOSPHAMIDE)
     Route: 040
     Dates: start: 20220824, end: 20220824
  3. SODIUM CHLORIDE [Suspect]
     Active Substance: SODIUM CHLORIDE
     Dosage: 250ML, QD, (DILUTED WITH EPIRUBICIN HYDROCHLORIDE)
     Route: 041
     Dates: start: 20220824, end: 20220824
  4. DEXTROSE MONOHYDRATE [Suspect]
     Active Substance: DEXTROSE MONOHYDRATE
     Indication: Medication dilution
     Dosage: 250ML, QD, (DILUTED WITH DOCETAXEL INJECTION)
     Route: 041
     Dates: start: 20220824, end: 20220824
  5. DOCETAXEL [Suspect]
     Active Substance: DOCETAXEL
     Indication: Breast cancer female
     Dosage: 110MG, QD, (DILUTED WITH 5% GLUCOSE INJECTION)
     Route: 041
     Dates: start: 20220824, end: 20220824
  6. EPIRUBICIN HYDROCHLORIDE [Suspect]
     Active Substance: EPIRUBICIN HYDROCHLORIDE
     Indication: Breast cancer female
     Dosage: 110 MG, QD, (DILUTED WITH 0.9% SODIUM CHLORIDE INJECTION)
     Route: 041
     Dates: start: 20220824, end: 20220824
  7. GRANULOCYTE COLONY-STIMULATING FACTOR NOS [Concomitant]
     Active Substance: GRANULOCYTE COLONY-STIMULATING FACTOR NOS
     Indication: White blood cell count decreased
     Dosage: 75 MICROGRAM, 3 DAYS
     Route: 058
     Dates: start: 20220826
  8. GRANULOCYTE COLONY-STIMULATING FACTOR NOS [Concomitant]
     Active Substance: GRANULOCYTE COLONY-STIMULATING FACTOR NOS
     Indication: Prophylaxis

REACTIONS (3)
  - Myelosuppression [Recovering/Resolving]
  - Decreased appetite [Unknown]
  - Asthenia [Unknown]

NARRATIVE: CASE EVENT DATE: 20220829
